FAERS Safety Report 4733630-8 (Version None)
Quarter: 2005Q3

REPORT INFORMATION
  Report Type: 
  Country: None (occurrence: None)
  Receive Date: 20050803
  Receipt Date: 20050727
  Transmission Date: 20060218
  Serious: Yes (Other)
  Sender: FDA-Public Use
  Company Number: CH-ABBOTT-05P-151-0306848-00

PATIENT
  Age: 77 Year
  Sex: Female

DRUGS (7)
  1. DEPAKENE [Suspect]
     Indication: BIPOLAR DISORDER
     Route: 048
     Dates: start: 20050505, end: 20050518
  2. PROPRANOLOL HYDROCHLORIDE [Concomitant]
     Indication: ESSENTIAL HYPERTENSION
     Route: 048
     Dates: start: 19900101
  3. QUETIAPINE FUMARATE [Concomitant]
     Indication: HYPOMANIA
     Route: 048
     Dates: start: 20050401
  4. PHENPROCOUMON [Concomitant]
     Indication: PULMONARY EMBOLISM
     Route: 048
     Dates: start: 20010101
  5. LACTULOSE [Concomitant]
     Indication: CONSTIPATION
     Route: 048
  6. CYANOCOBALAMIN [Concomitant]
     Indication: ANAEMIA VITAMIN B12 DEFICIENCY
     Route: 030
     Dates: start: 20050406, end: 20050406
  7. POTASSIUM SULFATE [Concomitant]
     Indication: DRUG USE FOR UNKNOWN INDICATION

REACTIONS (2)
  - LEUKOPENIA [None]
  - NEUTROPENIA [None]
